FAERS Safety Report 7166231-5 (Version None)
Quarter: 2010Q4

REPORT INFORMATION
  Report Type: 
  Country: None (occurrence: None)
  Receive Date: 20101201
  Receipt Date: 20101116
  Transmission Date: 20110411
  Serious: Yes (Death, Hospitalization)
  Sender: FDA-Public Use
  Company Number: AUR-APL-2010-02873

PATIENT
  Age: 60 Year
  Sex: Female

DRUGS (3)
  1. AMLODIPINE [Suspect]
  2. METOPROLOL TARTRATE [Suspect]
  3. NAPROXEN [Suspect]
     Dosage: 40 TABLETS

REACTIONS (5)
  - BLOOD PH DECREASED [None]
  - DRUG LEVEL INCREASED [None]
  - HAEMODIALYSIS [None]
  - HYPOTENSION [None]
  - INCORRECT DOSE ADMINISTERED [None]
